FAERS Safety Report 15185408 (Version 1)
Quarter: 2018Q3

REPORT INFORMATION
  Report Type: Spontaneous
  Country: US (occurrence: US)
  Receive Date: 20180723
  Receipt Date: 20180723
  Transmission Date: 20181010
  Serious: Yes (Hospitalization, Other)
  Sender: FDA-Public Use
  Company Number: US-SHIRE-US201827015

PATIENT
  Age: 14 Month
  Sex: Male

DRUGS (1)
  1. GAMMAGARD LIQUID [Suspect]
     Active Substance: HUMAN IMMUNOGLOBULIN G
     Indication: KAWASAKI^S DISEASE
     Dosage: 3 DOSES AT 2 GRAMS PER KG
     Route: 042

REACTIONS (3)
  - Overdose [Unknown]
  - Rocky mountain spotted fever [Unknown]
  - Hospitalisation [Unknown]
